FAERS Safety Report 10167936 (Version 2)
Quarter: 2014Q2

REPORT INFORMATION
  Report Type: Spontaneous
  Country: US (occurrence: US)
  Receive Date: 20140512
  Receipt Date: 20140513
  Transmission Date: 20141212
  Serious: No
  Sender: FDA-Public Use
  Company Number: US-ASTRAZENECA-2014SE21348

PATIENT
  Age: 69 Year
  Sex: Female
  Weight: 77.1 kg

DRUGS (4)
  1. ARIMIDEX [Suspect]
     Indication: BREAST CANCER FEMALE
     Dosage: UNKNOWN
     Route: 048
  2. FASLODEX [Suspect]
     Indication: BREAST CANCER FEMALE
     Dosage: 500 MG, GIVEN IN 250 MG DIVIDED DOSES
     Route: 030
     Dates: start: 20140307, end: 20140321
  3. OXYCODONE [Concomitant]
     Indication: PAIN
     Dosage: UNKNOWN PRN
     Route: 065
  4. UNSPECIFIED [Concomitant]
     Indication: HYPOTHYROIDISM
     Route: 065

REACTIONS (24)
  - Anxiety [Not Recovered/Not Resolved]
  - Insomnia [Not Recovered/Not Resolved]
  - Pain [Not Recovered/Not Resolved]
  - Axillary pain [Not Recovered/Not Resolved]
  - Abnormal dreams [Not Recovered/Not Resolved]
  - Confusional state [Not Recovered/Not Resolved]
  - Disturbance in attention [Not Recovered/Not Resolved]
  - Thinking abnormal [Not Recovered/Not Resolved]
  - Memory impairment [Not Recovered/Not Resolved]
  - Body height decreased [Not Recovered/Not Resolved]
  - Hot flush [Not Recovered/Not Resolved]
  - Pruritus [Unknown]
  - Nausea [Unknown]
  - Bone pain [Not Recovered/Not Resolved]
  - Arthralgia [Not Recovered/Not Resolved]
  - No therapeutic response [Unknown]
  - Drug dose omission [Not Recovered/Not Resolved]
  - Back pain [Not Recovered/Not Resolved]
  - Pyrexia [Unknown]
  - Constipation [Recovered/Resolved]
  - Agitation [Unknown]
  - Depression [Unknown]
  - Injection site pain [Recovering/Resolving]
  - Nervousness [Not Recovered/Not Resolved]
